FAERS Safety Report 21147493 (Version 1)
Quarter: 2022Q3

REPORT INFORMATION
  Report Type: Spontaneous
  Country: US (occurrence: None)
  Receive Date: 20220728
  Receipt Date: 20220728
  Transmission Date: 20221026
  Serious: Yes (Life-Threatening, Hospitalization)
  Sender: FDA-Public Use
  Company Number: None

PATIENT
  Age: 63 Year
  Sex: Male

DRUGS (1)
  1. HYDROMORPHONE [Suspect]
     Active Substance: HYDROMORPHONE

REACTIONS (7)
  - Sepsis [None]
  - Pneumonia [None]
  - Epilepsy [None]
  - Unresponsive to stimuli [None]
  - Acute kidney injury [None]
  - Overdose [None]
  - Miosis [None]

NARRATIVE: CASE EVENT DATE: 20220305
